FAERS Safety Report 13615153 (Version 4)
Quarter: 2017Q3

REPORT INFORMATION
  Report Type: Report from Study
  Country: None (occurrence: CH)
  Receive Date: 20170606
  Receipt Date: 20170823
  Transmission Date: 20171127
  Serious: Yes (Hospitalization, Other)
  Sender: FDA-Public Use
  Company Number: CH-ABBVIE-17K-151-1983305-00

PATIENT
  Age: 60 Year
  Sex: Male
  Weight: 55 kg

DRUGS (18)
  1. HUMIRA [Suspect]
     Active Substance: ADALIMUMAB
     Route: 058
     Dates: start: 20141104, end: 20170217
  2. SERESTA [Concomitant]
     Active Substance: OXAZEPAM
     Indication: PRODUCT USED FOR UNKNOWN INDICATION
     Dosage: AS NEEDED, MAX 3/24HOURS
  3. ASPIRIN. [Concomitant]
     Active Substance: ASPIRIN
     Indication: PRODUCT USED FOR UNKNOWN INDICATION
     Route: 048
  4. HUMIRA [Suspect]
     Active Substance: ADALIMUMAB
     Indication: PSORIASIS
     Route: 058
     Dates: start: 20090928, end: 20110805
  5. HUMIRA [Suspect]
     Active Substance: ADALIMUMAB
     Route: 058
     Dates: start: 20170420
  6. CONCOR [Concomitant]
     Active Substance: BISOPROLOL FUMARATE
     Indication: PRODUCT USED FOR UNKNOWN INDICATION
  7. ESOMEP [Concomitant]
     Active Substance: ESOMEPRAZOLE
     Indication: PRODUCT USED FOR UNKNOWN INDICATION
     Route: 048
  8. ATORVASTATIN [Concomitant]
     Active Substance: ATORVASTATIN
     Indication: PRODUCT USED FOR UNKNOWN INDICATION
  9. BECOZYM FORTE [Concomitant]
     Indication: PRODUCT USED FOR UNKNOWN INDICATION
  10. REMERON [Concomitant]
     Active Substance: MIRTAZAPINE
     Indication: PRODUCT USED FOR UNKNOWN INDICATION
     Dosage: 0.5
     Route: 048
  11. ATACAND [Concomitant]
     Active Substance: CANDESARTAN CILEXETIL
     Indication: PRODUCT USED FOR UNKNOWN INDICATION
     Route: 048
  12. BENERVA [Concomitant]
     Active Substance: THIAMINE
     Indication: PRODUCT USED FOR UNKNOWN INDICATION
     Route: 048
  13. NOVORAPID [Concomitant]
     Active Substance: INSULIN ASPART
     Indication: PRODUCT USED FOR UNKNOWN INDICATION
  14. CREON [Concomitant]
     Active Substance: PANCRELIPASE AMYLASE\PANCRELIPASE LIPASE\PANCRELIPASE PROTEASE
     Indication: PRODUCT USED FOR UNKNOWN INDICATION
     Dosage: ADDITIONAL 1 CAPSULE FOR IN-BETWEEN MEAL
  15. INSULIN [Concomitant]
     Active Substance: INSULIN NOS
     Indication: PRODUCT USED FOR UNKNOWN INDICATION
     Route: 058
  16. HUMIRA [Suspect]
     Active Substance: ADALIMUMAB
     Route: 058
     Dates: start: 20110819, end: 201202
  17. HUMIRA [Suspect]
     Active Substance: ADALIMUMAB
     Route: 058
     Dates: start: 20130806, end: 20130806
  18. HUMIRA [Suspect]
     Active Substance: ADALIMUMAB
     Route: 058
     Dates: start: 20130904, end: 20130918

REACTIONS (24)
  - Respiratory syncytial virus test positive [Recovered/Resolved]
  - Hepatic steatosis [Recovered/Resolved]
  - Pneumonia pneumococcal [Recovered/Resolved]
  - Loss of consciousness [Recovered/Resolved]
  - Renal failure [Recovered/Resolved]
  - Gastroenteritis [Recovered/Resolved]
  - Presyncope [Recovered/Resolved]
  - Respiratory failure [Unknown]
  - Cholestasis [Recovered/Resolved]
  - Weight decreased [Unknown]
  - Dehydration [Unknown]
  - Concussion [Recovered/Resolved]
  - Acute kidney injury [Unknown]
  - Transaminases increased [Recovered/Resolved]
  - Decreased appetite [Unknown]
  - Malnutrition [Recovered/Resolved]
  - Normochromic normocytic anaemia [Recovered/Resolved]
  - Pneumococcal sepsis [Recovered/Resolved]
  - Depression [Unknown]
  - Hypoglycaemia [Recovered/Resolved]
  - Fall [Recovered/Resolved]
  - Alcohol abuse [Unknown]
  - Hepatic lesion [Unknown]
  - Dizziness [Unknown]

NARRATIVE: CASE EVENT DATE: 2017
